FAERS Safety Report 9958159 (Version 1)
Quarter: 2014Q1

REPORT INFORMATION
  Report Type: Report from Study
  Country: US (occurrence: US)
  Receive Date: 20140304
  Receipt Date: 20140304
  Transmission Date: 20141002
  Serious: No
  Sender: FDA-Public Use
  Company Number: US-ABBVIE-13P-163-1093931-00

PATIENT
  Age: 25 Year
  Sex: Female

DRUGS (6)
  1. HUMIRA [Suspect]
     Indication: CROHN^S DISEASE
     Dates: start: 201302
  2. HUMIRA [Suspect]
  3. IMURAN [Concomitant]
     Indication: CROHN^S DISEASE
  4. PREDNISONE [Concomitant]
     Indication: CROHN^S DISEASE
  5. FOLATE ACID [Concomitant]
     Indication: PRODUCT USED FOR UNKNOWN INDICATION
  6. ORTH TRICYCLINE [Concomitant]
     Indication: HORMONE LEVEL ABNORMAL

REACTIONS (1)
  - Injection site pain [Not Recovered/Not Resolved]
